FAERS Safety Report 8554535-0 (Version None)
Quarter: 2012Q3

REPORT INFORMATION
  Report Type: 
  Country: None (occurrence: None)
  Receive Date: 20120731
  Receipt Date: 20120723
  Transmission Date: 20120928
  Serious: Yes (Life-Threatening, Hospitalization)
  Sender: FDA-Public Use
  Company Number: CA-ELI_LILLY_AND_COMPANY-CA201205009067

PATIENT
  Sex: Female
  Weight: 65.76 kg

DRUGS (2)
  1. FORTEO [Suspect]
     Indication: OSTEOPOROSIS
     Dosage: 20 UG, QD
     Route: 058
     Dates: start: 20110406, end: 20120521
  2. FORTEO [Suspect]
     Dosage: 20 UG, QD
     Route: 058
     Dates: start: 20120706

REACTIONS (8)
  - RESPIRATORY FAILURE [None]
  - GASTROINTESTINAL BACTERIAL INFECTION [None]
  - PULSE ABSENT [None]
  - IMMUNODEFICIENCY [None]
  - BACTERAEMIA [None]
  - DIABETES MELLITUS [None]
  - RENAL FAILURE [None]
  - MALAISE [None]
